FAERS Safety Report 21283528 (Version 1)
Quarter: 2022Q3

REPORT INFORMATION
  Report Type: Spontaneous
  Country: US (occurrence: None)
  Receive Date: 20220901
  Receipt Date: 20220901
  Transmission Date: 20221027
  Serious: No
  Sender: FDA-Public Use
  Company Number: None

PATIENT
  Sex: Female

DRUGS (1)
  1. KESIMPTA [Suspect]
     Active Substance: OFATUMUMAB
     Indication: Multiple sclerosis
     Dosage: 20MG/0.4ML ONCE A MONTH UNDER THE SKIN?
     Route: 058
     Dates: start: 202107

REACTIONS (3)
  - Condition aggravated [None]
  - Multiple sclerosis relapse [None]
  - Therapy non-responder [None]
